FAERS Safety Report 20236514 (Version 1)
Quarter: 2021Q4

REPORT INFORMATION
  Report Type: Spontaneous
  Country: BE (occurrence: BE)
  Receive Date: 20211228
  Receipt Date: 20211228
  Transmission Date: 20220303
  Serious: Yes (Hospitalization)
  Sender: FDA-Public Use
  Company Number: BE-ELI_LILLY_AND_COMPANY-BE202112010421

PATIENT
  Age: 25 Year
  Sex: Male

DRUGS (1)
  1. OLUMIANT [Suspect]
     Active Substance: BARICITINIB
     Indication: Dermatitis atopic
     Dosage: 4 MG, DAILY
     Route: 065
     Dates: start: 2020, end: 20211221

REACTIONS (5)
  - Erythema [Unknown]
  - Oedema peripheral [Unknown]
  - Pain in extremity [Unknown]
  - Skin infection [Unknown]
  - Skin reaction [Unknown]

NARRATIVE: CASE EVENT DATE: 20211101
